FAERS Safety Report 12727713 (Version 1)
Quarter: 2016Q3

REPORT INFORMATION
  Report Type: Other
  Country: None (occurrence: RU)
  Receive Date: 20160909
  Receipt Date: 20160909
  Transmission Date: 20161109
  Serious: Yes (Other)
  Sender: FDA-Public Use
  Company Number: RU-MERCK KGAA-1057197

PATIENT

DRUGS (1)
  1. NOVOTHYROX [Suspect]
     Active Substance: LEVOTHYROXINE SODIUM

REACTIONS (4)
  - Hyperthyroidism [None]
  - Asthenia [None]
  - Oropharyngeal pain [None]
  - Overdose [None]
